FAERS Safety Report 7018761-4 (Version None)
Quarter: 2010Q3

REPORT INFORMATION
  Report Type: 
  Country: None (occurrence: None)
  Receive Date: 20100928
  Receipt Date: 20100927
  Transmission Date: 20110219
  Serious: Yes (Hospitalization)
  Sender: FDA-Public Use
  Company Number: FR-EISAI INC.-E2020-07559-SPO-FR

PATIENT
  Sex: Female

DRUGS (8)
  1. ARICEPT [Suspect]
     Indication: AMNESIA
     Route: 048
     Dates: end: 20100828
  2. ZANIDIP [Concomitant]
  3. CO-APROVEL [Concomitant]
  4. KARDEGIC [Concomitant]
  5. SEROPLEX [Concomitant]
  6. ATARAX [Concomitant]
  7. HAVLANE [Concomitant]
  8. NULYTELY [Concomitant]

REACTIONS (3)
  - ATRIOVENTRICULAR BLOCK FIRST DEGREE [None]
  - BRADYCARDIA [None]
  - LONG QT SYNDROME [None]
